FAERS Safety Report 6043571-4 (Version None)
Quarter: 2009Q1

REPORT INFORMATION
  Report Type: 
  Country: None (occurrence: None)
  Receive Date: 20090115
  Receipt Date: 20090102
  Transmission Date: 20090719
  Serious: Yes (Life-Threatening)
  Sender: FDA-Public Use
  Company Number: 1000003453

PATIENT
  Age: 34 Year
  Sex: Male
  Weight: 80 kg

DRUGS (3)
  1. ESCITALOPRAM        (ESCITALPRAM OXALATE) [Suspect]
     Indication: DEPRESSION
     Dosage: (20 MG), ORAL
     Route: 048
     Dates: start: 20080712, end: 20081212
  2. ESCITALOPRAM [Suspect]
     Indication: DEPRESSION
  3. ZOPICLONE [Concomitant]

REACTIONS (1)
  - GRAND MAL CONVULSION [None]
